FAERS Safety Report 25629781 (Version 1)
Quarter: 2025Q3

REPORT INFORMATION
  Report Type: Spontaneous
  Country: EU (occurrence: EU)
  Receive Date: 20250731
  Receipt Date: 20250731
  Transmission Date: 20251021
  Serious: Yes (Other)
  Sender: CELLTRION
  Company Number: None

PATIENT

DRUGS (1)
  1. VEGZELMA [Suspect]
     Active Substance: BEVACIZUMAB-ADCD
     Indication: Age-related macular degeneration

REACTIONS (3)
  - Iridocyclitis [Recovered/Resolved]
  - Vitritis [Recovered/Resolved]
  - Off label use [Unknown]
